FAERS Safety Report 9764544 (Version 1)
Quarter: 2013Q4

REPORT INFORMATION
  Report Type: Spontaneous
  Country: GB (occurrence: GB)
  Receive Date: 20131217
  Receipt Date: 20131217
  Transmission Date: 20140711
  Serious: Yes (Hospitalization)
  Sender: FDA-Public Use
  Company Number: GB-RANBAXY-2013R1-76008

PATIENT
  Age: 51 Year
  Sex: Female

DRUGS (1)
  1. AMOXICILLIN [Suspect]
     Indication: LOWER RESPIRATORY TRACT INFECTION
     Dosage: UNK
     Route: 048
     Dates: start: 20131031, end: 20131031

REACTIONS (4)
  - Anaphylactic reaction [Recovered/Resolved]
  - Face oedema [Recovered/Resolved]
  - Unresponsive to stimuli [Recovered/Resolved]
  - Malaise [Recovered/Resolved]
